FAERS Safety Report 25355981 (Version 1)
Quarter: 2025Q2

REPORT INFORMATION
  Report Type: Report from Study
  Country: IT (occurrence: IT)
  Receive Date: 20250525
  Receipt Date: 20250525
  Transmission Date: 20250717
  Serious: Yes (Other)
  Sender: ABBVIE
  Company Number: IT-JNJFOC-20250526805

PATIENT

DRUGS (2)
  1. IMBRUVICA [Suspect]
     Active Substance: IBRUTINIB
     Indication: Chronic lymphocytic leukaemia
     Dosage: 3 CYCLE AS MONOTHERAPY AFTER THAT 12 CYCLES OF I+V (VENETOCLAX 400 MG/DAY, INCLUDING A 5-WEEK DOS...
     Route: 048
     Dates: start: 202405, end: 202502
  2. VENETOCLAX [Suspect]
     Active Substance: VENETOCLAX
     Indication: Chronic lymphocytic leukaemia
     Dosage: 12 CYCLES OF I+V (VENETOCLAX 400 MG/DAY, INCLUDING A 5-WEEK DOSE RAMP-UP)
     Route: 048
     Dates: start: 202405, end: 202502

REACTIONS (3)
  - Atrial fibrillation [Unknown]
  - Neutropenia [Unknown]
  - Hypertension [Unknown]
